FAERS Safety Report 17826572 (Version 2)
Quarter: 2020Q2

REPORT INFORMATION
  Report Type: Spontaneous
  Country: US (occurrence: US)
  Receive Date: 20200526
  Receipt Date: 20200617
  Transmission Date: 20200714
  Serious: Yes (Other)
  Sender: FDA-Public Use
  Company Number: US-GILEAD-2020-0467950

PATIENT
  Age: 70 Year
  Sex: Male
  Weight: 145 kg

DRUGS (14)
  1. LEVOTHYROXINE. [Concomitant]
     Active Substance: LEVOTHYROXINE
  2. REMDESIVIR. [Suspect]
     Active Substance: REMDESIVIR
     Dosage: 100 MG, QD
     Route: 042
     Dates: start: 20200510, end: 20200510
  3. TRIMETHOBENZAMIDE [Concomitant]
     Active Substance: TRIMETHOBENZAMIDE
     Dosage: 200 MG, ONCE
     Dates: start: 20200508, end: 20200508
  4. METOPROLOL. [Concomitant]
     Active Substance: METOPROLOL
     Dosage: UNK
     Dates: start: 20200506
  5. TRADIPITANT. [Concomitant]
     Active Substance: TRADIPITANT
     Dosage: UNK
     Dates: start: 20200507
  6. REMDESIVIR. [Suspect]
     Active Substance: REMDESIVIR
     Indication: COVID-19
     Dosage: 200 MG, QD
     Route: 042
     Dates: start: 20200509, end: 20200509
  7. INSULIN LISPRO [Concomitant]
     Active Substance: INSULIN LISPRO
  8. ONDANSETRON [Concomitant]
     Active Substance: ONDANSETRON
  9. TOCILIZUMAB. [Concomitant]
     Active Substance: TOCILIZUMAB
     Dosage: 400 MG
  10. HEPARIN [Concomitant]
     Active Substance: HEPARIN SODIUM
  11. ENOXAPARIN [Concomitant]
     Active Substance: ENOXAPARIN
  12. ASA [Concomitant]
     Active Substance: ASPIRIN
  13. ACETAMINOPHEN. [Concomitant]
     Active Substance: ACETAMINOPHEN
  14. ETHACRYNIC ACID. [Concomitant]
     Active Substance: ETHACRYNIC ACID

REACTIONS (1)
  - Renal tubular necrosis [Unknown]

NARRATIVE: CASE EVENT DATE: 20200511
